FAERS Safety Report 8103364-0 (Version None)
Quarter: 2012Q1

REPORT INFORMATION
  Report Type: 
  Country: None (occurrence: None)
  Receive Date: 20120201
  Receipt Date: 20120131
  Transmission Date: 20120608
  Serious: Yes (Hospitalization)
  Sender: FDA-Public Use
  Company Number: US-BRACCO-007103

PATIENT
  Age: 55 Year
  Sex: Male

DRUGS (2)
  1. ISOVUE-370 [Suspect]
     Indication: CHEST DISCOMFORT
     Dates: start: 20080613, end: 20080613
  2. ISOVUE-370 [Suspect]
     Indication: ARTERIOGRAM CORONARY
     Dates: start: 20080613, end: 20080613

REACTIONS (1)
  - CORONARY NO-REFLOW PHENOMENON [None]
